FAERS Safety Report 5398934-7 (Version None)
Quarter: 2007Q3

REPORT INFORMATION
  Report Type: 
  Country: None (occurrence: None)
  Receive Date: 20070727
  Receipt Date: 20070723
  Transmission Date: 20080115
  Serious: Yes (Hospitalization)
  Sender: FDA-Public Use
  Company Number: BR-JNJFOC-20070705388

PATIENT
  Sex: Female

DRUGS (1)
  1. ORTHO EVRA [Suspect]
     Indication: MENSTRUAL CYCLE MANAGEMENT
     Route: 062

REACTIONS (4)
  - DEHYDRATION [None]
  - HEADACHE [None]
  - OFF LABEL USE [None]
  - VOMITING [None]
